FAERS Safety Report 20093676 (Version 1)
Quarter: 2021Q4

REPORT INFORMATION
  Report Type: Spontaneous
  Country: AT (occurrence: AT)
  Receive Date: 20211121
  Receipt Date: 20211121
  Transmission Date: 20220303
  Serious: Yes (Other)
  Sender: FDA-Public Use
  Company Number: AT-NOVARTISPH-NVSC2021AT262493

PATIENT

DRUGS (4)
  1. TAFINLAR [Suspect]
     Active Substance: DABRAFENIB MESYLATE
     Indication: Product used for unknown indication
     Dosage: UNK
     Route: 065
  2. TAFINLAR [Suspect]
     Active Substance: DABRAFENIB MESYLATE
     Dosage: UNK
     Route: 065
  3. MEKINIST [Suspect]
     Active Substance: TRAMETINIB DIMETHYL SULFOXIDE
     Indication: Product used for unknown indication
     Dosage: UNK
     Route: 065
  4. MEKINIST [Suspect]
     Active Substance: TRAMETINIB DIMETHYL SULFOXIDE
     Dosage: UNK
     Route: 065

REACTIONS (3)
  - Endocarditis [Unknown]
  - C-reactive protein increased [Unknown]
  - Pyrexia [Unknown]
